FAERS Safety Report 7549294-4 (Version None)
Quarter: 2011Q2

REPORT INFORMATION
  Report Type: 
  Country: None (occurrence: None)
  Receive Date: 20110615
  Receipt Date: 20020705
  Transmission Date: 20111010
  Serious: Yes (Death)
  Sender: FDA-Public Use
  Company Number: PHBS2002CO08149

PATIENT
  Age: 60 Year
  Sex: Female

DRUGS (1)
  1. EXELON [Suspect]
     Indication: DEMENTIA ALZHEIMER'S TYPE
     Dosage: 1.5 MG/DAY
     Route: 048
     Dates: start: 20011023

REACTIONS (1)
  - MYOCARDIAL INFARCTION [None]
